FAERS Safety Report 8602514-7 (Version None)
Quarter: 2012Q3

REPORT INFORMATION
  Report Type: 
  Country: None (occurrence: None)
  Receive Date: 20120817
  Receipt Date: 19911202
  Transmission Date: 20120928
  Serious: Yes (Hospitalization, Other)
  Sender: FDA-Public Use
  Company Number: US-ROCHE-1101335

PATIENT
  Age: 58 Year
  Sex: Female

DRUGS (4)
  1. ACTIVASE [Suspect]
     Dosage: 50 MG + 20 MG + 20 MG
     Route: 042
  2. PROMETHAZINE [Concomitant]
  3. ACTIVASE [Suspect]
     Indication: ACUTE MYOCARDIAL INFARCTION
     Route: 040
     Dates: start: 19911104
  4. MAALOX PLUS [Concomitant]
     Route: 048

REACTIONS (4)
  - REPERFUSION ARRHYTHMIA [None]
  - CHEST PAIN [None]
  - DYSPNOEA [None]
  - HYPERHIDROSIS [None]
